FAERS Safety Report 14337183 (Version 2)
Quarter: 2018Q1

REPORT INFORMATION
  Report Type: Spontaneous
  Country: AT (occurrence: AT)
  Receive Date: 20171229
  Receipt Date: 20180322
  Transmission Date: 20180509
  Serious: Yes (Hospitalization, Other)
  Sender: FDA-Public Use
  Company Number: AT-ASTRAZENECA-2017SF01127

PATIENT
  Age: 67 Year
  Sex: Female

DRUGS (40)
  1. LEPONEX [Suspect]
     Active Substance: CLOZAPINE
     Dosage: 400.0MG UNKNOWN
     Route: 048
     Dates: start: 20170526, end: 20170619
  2. PRAXITEN [Concomitant]
     Active Substance: OXAZEPAM
     Dosage: 40.0MG UNKNOWN
     Dates: start: 20170619, end: 20170620
  3. PRAXITEN [Concomitant]
     Active Substance: OXAZEPAM
     Dosage: 90.0MG UNKNOWN
     Dates: start: 20170618, end: 20170618
  4. TEMESTA (LORAZEPAM) [Concomitant]
     Active Substance: LORAZEPAM
     Dosage: 3.0MG UNKNOWN
     Dates: start: 20170707, end: 20170719
  5. TEMESTA (LORAZEPAM) [Concomitant]
     Active Substance: LORAZEPAM
     Dosage: 2.5MG UNKNOWN
     Dates: start: 20170720
  6. RISPERDAL [Concomitant]
     Active Substance: RISPERIDONE
     Dosage: 2.0MG UNKNOWN
     Dates: start: 20170703, end: 20170704
  7. SEROQUEL [Suspect]
     Active Substance: QUETIAPINE FUMARATE
     Dosage: 400.0MG UNKNOWN
     Route: 048
     Dates: start: 20170525, end: 20170616
  8. SEROQUEL [Suspect]
     Active Substance: QUETIAPINE FUMARATE
     Dosage: 400.0MG UNKNOWN
     Route: 048
     Dates: start: 20170614, end: 20170616
  9. SEROQUEL [Suspect]
     Active Substance: QUETIAPINE FUMARATE
     Dosage: 250.0MG UNKNOWN
     Route: 048
     Dates: start: 20170619, end: 20170619
  10. SERTRALINE [Suspect]
     Active Substance: SERTRALINE HYDROCHLORIDE
     Dosage: 100.0MG UNKNOWN
     Route: 065
     Dates: start: 20170614, end: 20170619
  11. PRAXITEN [Concomitant]
     Active Substance: OXAZEPAM
     Dosage: 75.0MG UNKNOWN
     Dates: start: 20170705, end: 20170706
  12. AMANTADINE SULFATE [Concomitant]
     Active Substance: AMANTADINE SULFATE
     Dosage: 200.0MG UNKNOWN
     Dates: start: 20170708, end: 20170719
  13. PANTOLOC [Concomitant]
     Active Substance: PANTOPRAZOLE SODIUM
     Dosage: 40.0MG UNKNOWN
     Dates: start: 20170614, end: 20170707
  14. LAEVOLAC [Concomitant]
     Active Substance: LACTULOSE
     Dosage: 2 EL
     Dates: start: 20170723
  15. ABILIFY [Suspect]
     Active Substance: ARIPIPRAZOLE
     Indication: PRODUCT USED FOR UNKNOWN INDICATION
     Dosage: 15.0MG UNKNOWN
     Route: 048
     Dates: start: 2016, end: 20161122
  16. PRAXITEN [Concomitant]
     Active Substance: OXAZEPAM
     Dosage: 100.0MG UNKNOWN
     Dates: start: 20170621, end: 20170626
  17. PRAXITEN [Concomitant]
     Active Substance: OXAZEPAM
     Dosage: 50.0MG UNKNOWN
     Dates: start: 20170626, end: 20170630
  18. RISPERDAL [Concomitant]
     Active Substance: RISPERIDONE
     Dosage: 1.0MG UNKNOWN
     Dates: start: 20170626, end: 20170629
  19. GLUCOPHAGE [Concomitant]
     Active Substance: METFORMIN HYDROCHLORIDE
     Dosage: 500.0MG UNKNOWN
     Dates: start: 20170614, end: 20170703
  20. SEROQUEL [Suspect]
     Active Substance: QUETIAPINE FUMARATE
     Dosage: 175.0MG UNKNOWN
     Route: 048
     Dates: start: 20170620, end: 20170620
  21. AKINETON [Suspect]
     Active Substance: BIPERIDEN HYDROCHLORIDE
     Dosage: 4.0MG UNKNOWN
     Route: 065
     Dates: start: 20170703, end: 20170707
  22. RISPERDAL [Concomitant]
     Active Substance: RISPERIDONE
     Dosage: 1.0MG UNKNOWN
     Dates: start: 20170706, end: 20170706
  23. RISPERDAL [Concomitant]
     Active Substance: RISPERIDONE
     Dosage: 1.5MG UNKNOWN
     Dates: start: 20170705, end: 20170705
  24. MOLAXOLE [Concomitant]
     Active Substance: POLYETHYLENE GLYCOL 3350\POTASSIUM CHLORIDE\SODIUM BICARBONATE\SODIUM CHLORIDE
     Dosage: 1.0DF UNKNOWN
     Dates: start: 20170614, end: 20170707
  25. ABILIFY [Suspect]
     Active Substance: ARIPIPRAZOLE
     Indication: PRODUCT USED FOR UNKNOWN INDICATION
     Dosage: 5.0MG UNKNOWN
     Route: 048
     Dates: start: 20170725, end: 20170726
  26. PRAXITEN [Concomitant]
     Active Substance: OXAZEPAM
     Dosage: 75.0MG UNKNOWN
     Dates: start: 20170705, end: 20170706
  27. RISPERDAL [Concomitant]
     Active Substance: RISPERIDONE
     Dosage: 4.0MG UNKNOWN
     Dates: start: 20170701, end: 20170702
  28. NACL [Concomitant]
     Active Substance: SODIUM CHLORIDE
     Dosage: 2.0DF UNKNOWN
     Dates: start: 20170614, end: 20170620
  29. LEPONEX [Suspect]
     Active Substance: CLOZAPINE
     Dosage: 400.0MG UNKNOWN
     Route: 048
     Dates: start: 20170614, end: 20170619
  30. LOVENOX [Concomitant]
     Active Substance: ENOXAPARIN SODIUM
     Dosage: 40.0MG UNKNOWN
     Dates: start: 20170621, end: 20170729
  31. SELEXID [Concomitant]
     Dosage: 400.0MG UNKNOWN
     Dates: start: 20170627, end: 20170630
  32. AKINETON [Suspect]
     Active Substance: BIPERIDEN HYDROCHLORIDE
     Dosage: 4.0MG UNKNOWN
     Route: 065
     Dates: start: 20170614, end: 20170622
  33. ABILIFY [Suspect]
     Active Substance: ARIPIPRAZOLE
     Indication: PRODUCT USED FOR UNKNOWN INDICATION
     Dosage: 10.0MG UNKNOWN
     Route: 048
     Dates: start: 20170727
  34. PRAXITEN [Concomitant]
     Active Substance: OXAZEPAM
     Dosage: 130.0MG UNKNOWN
     Dates: start: 20170614, end: 20170616
  35. PRAXITEN [Concomitant]
     Active Substance: OXAZEPAM
     Dosage: 150.0MG UNKNOWN
     Dates: start: 20170701, end: 20170704
  36. RISPERDAL [Concomitant]
     Active Substance: RISPERIDONE
     Dosage: 3.0MG UNKNOWN
     Dates: start: 20170630, end: 20170630
  37. SEROQUEL [Suspect]
     Active Substance: QUETIAPINE FUMARATE
     Dosage: 300.0MG UNKNOWN
     Route: 048
     Dates: start: 20170617, end: 20170618
  38. LEPONEX [Suspect]
     Active Substance: CLOZAPINE
     Dosage: 350.0MG UNKNOWN
     Route: 048
     Dates: start: 20170620, end: 20170620
  39. ABILIFY [Suspect]
     Active Substance: ARIPIPRAZOLE
     Indication: PRODUCT USED FOR UNKNOWN INDICATION
     Dosage: 7.5MG UNKNOWN
     Route: 048
     Dates: start: 20160704
  40. PRAXITEN [Concomitant]
     Active Substance: OXAZEPAM
     Dosage: 97.5MG UNKNOWN
     Dates: start: 20170617, end: 20170617

REACTIONS (5)
  - Delirium [Recovered/Resolved]
  - Wrong technique in product usage process [Unknown]
  - Neuroleptic malignant syndrome [Recovered/Resolved]
  - Underdose [Unknown]
  - Extrapyramidal disorder [Recovered/Resolved]

NARRATIVE: CASE EVENT DATE: 20170619
